FAERS Safety Report 5266805-2 (Version None)
Quarter: 2007Q1

REPORT INFORMATION
  Report Type: 
  Country: None (occurrence: None)
  Receive Date: 20061213
  Receipt Date: 20021118
  Transmission Date: 20070707
  Serious: Yes (Hospitalization)
  Sender: FDA-Public Use
  Company Number: 2002UW15740

PATIENT
  Age: 73 Year
  Sex: Female
  Weight: 71.6683 kg

DRUGS (3)
  1. NOLVADEX [Suspect]
     Indication: BREAST CANCER
     Dates: start: 20011201
  2. UNSPECIFIED CHEMOTHERAPY [Concomitant]
  3. ALL KINDS OF MEDICINE [Concomitant]

REACTIONS (2)
  - MUSCLE SPASMS [None]
  - THROMBOSIS [None]
